FAERS Safety Report 25798162 (Version 2)
Quarter: 2025Q4

REPORT INFORMATION
  Report Type: Spontaneous
  Country: US (occurrence: US)
  Receive Date: 20250912
  Receipt Date: 20251110
  Transmission Date: 20260117
  Serious: Yes (Life-Threatening, Other)
  Sender: ABBVIE
  Company Number: US-ABBVIE-6457590

PATIENT
  Age: 78 Year
  Sex: Female

DRUGS (7)
  1. SYNTHROID [Suspect]
     Active Substance: LEVOTHYROXINE SODIUM
     Indication: Hypothyroidism
     Route: 048
     Dates: start: 2022, end: 20250601
  2. SYNTHROID [Suspect]
     Active Substance: LEVOTHYROXINE SODIUM
     Indication: Hypothyroidism
     Route: 048
     Dates: start: 202507
  3. METFORMIN [Concomitant]
     Active Substance: METFORMIN HYDROCHLORIDE
     Indication: Diabetes mellitus
  4. GLIPIZIDE [Concomitant]
     Active Substance: GLIPIZIDE
     Indication: Diabetes mellitus
  5. LISINOPRIL [Concomitant]
     Active Substance: LISINOPRIL
     Indication: Hypertension
  6. ZETIA [Concomitant]
     Active Substance: EZETIMIBE
     Indication: Blood cholesterol increased
  7. METOPROLOL [Concomitant]
     Active Substance: METOPROLOL
     Indication: Heart rate irregular

REACTIONS (21)
  - Amnesia [Recovering/Resolving]
  - Knee arthroplasty [Recovered/Resolved]
  - Diabetes mellitus [Unknown]
  - Product dose omission in error [Recovering/Resolving]
  - Thyroid disorder [Unknown]
  - Therapeutic product effect decreased [Unknown]
  - Gastrointestinal disorder [Recovering/Resolving]
  - Nausea [Unknown]
  - Feeding disorder [Recovering/Resolving]
  - Weight decreased [Recovering/Resolving]
  - Joint injury [Unknown]
  - Fall [Unknown]
  - Skin wrinkling [Unknown]
  - Lid sulcus deepened [Unknown]
  - Malaise [Not Recovered/Not Resolved]
  - Walking aid user [Unknown]
  - Arthralgia [Unknown]
  - Pain [Not Recovered/Not Resolved]
  - Asthenia [Recovering/Resolving]
  - Gastroenteritis [Unknown]
  - Insomnia [Unknown]

NARRATIVE: CASE EVENT DATE: 20250101
